FAERS Safety Report 9922093 (Version 2)
Quarter: 2014Q1

REPORT INFORMATION
  Report Type: Spontaneous
  Country: US (occurrence: US)
  Receive Date: 20140225
  Receipt Date: 20140302
  Transmission Date: 20141002
  Serious: No
  Sender: FDA-Public Use
  Company Number: US-TEVA-461278USA

PATIENT
  Age: 78 Year
  Sex: Female
  Weight: 54.48 kg

DRUGS (3)
  1. PROAIR HFA [Suspect]
     Indication: DYSPNOEA
     Dosage: 4-6 HOURS
     Route: 055
  2. CRESTOR [Concomitant]
     Indication: BLOOD CHOLESTEROL INCREASED
  3. LOSARTAN [Concomitant]
     Indication: HYPERTENSION

REACTIONS (2)
  - Dyspnoea [Recovered/Resolved]
  - Drug effect decreased [Recovered/Resolved]
